FAERS Safety Report 9855935 (Version 1)
Quarter: 2013Q4

REPORT INFORMATION
  Report Type: Spontaneous
  Country: US (occurrence: None)
  Receive Date: 20131226
  Receipt Date: 20131226
  Transmission Date: 20140711
  Serious: No
  Sender: FDA-Public Use
  Company Number: PHEH2013US012118

PATIENT
  Age: 28 Year
  Sex: Male

DRUGS (2)
  1. GILENYA (FINGOLIMOD) CAPSULE [Suspect]
     Route: 048
  2. AMPYRA (FAMPRIDINE) TABLET, 10MG [Suspect]
     Route: 048
     Dates: start: 20130308

REACTIONS (3)
  - Middle insomnia [None]
  - Nasal congestion [None]
  - Dry throat [None]
